FAERS Safety Report 8425693-3 (Version None)
Quarter: 2012Q2

REPORT INFORMATION
  Report Type: 
  Country: None (occurrence: None)
  Receive Date: 20120611
  Receipt Date: 20120607
  Transmission Date: 20120825
  Serious: Yes (Death)
  Sender: FDA-Public Use
  Company Number: PHHY2012KR048934

PATIENT
  Sex: Female

DRUGS (3)
  1. IMATINIB MESYLATE [Suspect]
     Dosage: 100 MG/ DAY
     Route: 048
     Dates: start: 20100501
  2. IMATINIB MESYLATE [Suspect]
     Indication: CHRONIC MYELOID LEUKAEMIA
     Dosage: 300 MG/ DAY
     Route: 048
     Dates: start: 20060914, end: 20080501
  3. IMATINIB MESYLATE [Suspect]
     Dosage: 200 MG/ DAY
     Route: 048
     Dates: start: 20080501, end: 20100301

REACTIONS (1)
  - DEATH [None]
